FAERS Safety Report 7985351-6 (Version None)
Quarter: 2011Q4

REPORT INFORMATION
  Report Type: 
  Country: None (occurrence: None)
  Receive Date: 20111216
  Receipt Date: 20111116
  Transmission Date: 20120403
  Serious: No
  Sender: FDA-Public Use
  Company Number: US-ABBOTT-11P-163-0874684-00

PATIENT
  Sex: Male
  Weight: 127.12 kg

DRUGS (12)
  1. METOPROLOL TARTRATE [Concomitant]
     Indication: HEART RATE INCREASED
  2. CRESTOR [Concomitant]
     Indication: BLOOD CHOLESTEROL INCREASED
  3. DIOVAN HCT [Concomitant]
     Indication: HYPERTENSION
  4. TERAZOSIN HCL [Concomitant]
     Indication: BENIGN PROSTATIC HYPERPLASIA
  5. MINOXIDIL [Concomitant]
     Indication: HYPERTENSION
  6. NIASPAN [Concomitant]
     Indication: BLOOD CHOLESTEROL INCREASED
  7. ASPIRIN [Concomitant]
     Indication: CARDIOVASCULAR EVENT PROPHYLAXIS
  8. TRILIPIX [Suspect]
     Indication: BLOOD CHOLESTEROL INCREASED
     Dates: start: 20110101, end: 20110901
  9. LEVOTHYROXINE SODIUM [Concomitant]
     Indication: HYPOTHYROIDISM
  10. FISH OIL [Concomitant]
     Indication: CARDIOVASCULAR EVENT PROPHYLAXIS
  11. ONGLYZA [Concomitant]
     Indication: DIABETES MELLITUS
  12. VITAMIN D [Concomitant]
     Indication: VITAMIN SUPPLEMENTATION

REACTIONS (4)
  - ARTHRALGIA [None]
  - FLANK PAIN [None]
  - PAIN IN EXTREMITY [None]
  - BLOOD CREATININE INCREASED [None]
